FAERS Safety Report 15015084 (Version 1)
Quarter: 2018Q2

REPORT INFORMATION
  Report Type: Spontaneous
  Country: US (occurrence: US)
  Receive Date: 20180615
  Receipt Date: 20180615
  Transmission Date: 20180711
  Serious: Yes (Other)
  Sender: FDA-Public Use
  Company Number: US-RECKITT BENCKISER HEALTHCARE INT LIMITED-RB-87282-2018

PATIENT
  Age: 82 Year
  Sex: Female

DRUGS (1)
  1. SALICYLIC ACID. [Suspect]
     Active Substance: SALICYLIC ACID
     Indication: PRODUCT USED FOR UNKNOWN INDICATION
     Dosage: UNK
     Route: 065

REACTIONS (8)
  - Coagulopathy [Recovering/Resolving]
  - Metabolic acidosis [Unknown]
  - Confusional state [Recovering/Resolving]
  - Cognitive disorder [Unknown]
  - Mental status changes [Unknown]
  - Urine ketone body present [Unknown]
  - Respiratory alkalosis [Unknown]
  - Toxicity to various agents [Recovering/Resolving]
